FAERS Safety Report 5299133-X (Version None)
Quarter: 2007Q2

REPORT INFORMATION
  Report Type: 
  Country: None (occurrence: None)
  Receive Date: 20070417
  Receipt Date: 20070402
  Transmission Date: 20071010
  Serious: Yes (Hospitalization)
  Sender: FDA-Public Use
  Company Number: AU-GENENTECH-215444

PATIENT
  Sex: Female

DRUGS (8)
  1. XOLAIR [Suspect]
     Indication: ASTHMA
     Dosage: UNK, 2/WEEK
     Route: 058
     Dates: start: 20041106
  2. ANTIBIOTIC (UNKNOWN) [Concomitant]
     Indication: DRUG USE FOR UNKNOWN INDICATION
  3. BRONCHODILATOR [Concomitant]
     Indication: DRUG USE FOR UNKNOWN INDICATION
  4. FLIXOTIDE [Concomitant]
     Indication: DRUG USE FOR UNKNOWN INDICATION
  5. FORMOTEROL FUMARATE [Concomitant]
     Indication: DRUG USE FOR UNKNOWN INDICATION
  6. STEROIDS (UNK INGREDIENTS) [Concomitant]
     Indication: DRUG USE FOR UNKNOWN INDICATION
     Route: 045
  7. TIOTROPIUM [Concomitant]
     Indication: DRUG USE FOR UNKNOWN INDICATION
  8. CELEBREX [Concomitant]
     Indication: MYALGIA

REACTIONS (2)
  - ASTHMA [None]
  - DRUG INEFFECTIVE [None]
